FAERS Safety Report 18422620 (Version 1)
Quarter: 2020Q4

REPORT INFORMATION
  Report Type: Spontaneous
  Country: DK (occurrence: DK)
  Receive Date: 20201024
  Receipt Date: 20201024
  Transmission Date: 20210114
  Serious: Yes (Hospitalization)
  Sender: FDA-Public Use
  Company Number: DK-ACCORD-206095

PATIENT
  Age: 78 Year
  Sex: Male
  Weight: 110 kg

DRUGS (7)
  1. CARVEDILOL/CARVEDILOL HYDROCHLODRIDE [Concomitant]
     Active Substance: CARVEDILOL HYDROCHLORIDE
     Indication: HYPERTENSION
     Dosage: STERNGTH: 25 MG
     Route: 048
     Dates: start: 20131106, end: 20200904
  2. SPIRONOLACTONE. [Suspect]
     Active Substance: SPIRONOLACTONE
     Indication: HYPERTENSION
     Dosage: STRENGTH: UNKNOWN, START DATE UNKONWN, BUT AT LEAST SINCE 02-MAY-2019
     Route: 048
  3. DIGOXIN DAK [Concomitant]
     Active Substance: DIGOXIN
     Indication: ATRIAL FIBRILLATION
     Dosage: STRENGTH: 62.5 UG
     Route: 048
     Dates: start: 20101230
  4. METFORMIN [Concomitant]
     Active Substance: METFORMIN HYDROCHLORIDE
     Indication: TYPE 2 DIABETES MELLITUS
     Dosage: STRENGTH: 1000 MG, START DATE UNKNOWN
     Route: 048
  5. ENALAPRIL [Suspect]
     Active Substance: ENALAPRIL
     Indication: HYPERTENSION
     Dosage: STRENGTH: UNKNOWN, START DATE UNKONWN, BUT AT LEAST SINCE 2014
     Route: 048
  6. HYDROCHLOROTHIAZIDE/LOSARTAN POTASSIUM [Suspect]
     Active Substance: HYDROCHLOROTHIAZIDE\LOSARTAN POTASSIUM
     Indication: HYPERTENSION
     Dosage: STRENGTH: 100+12.5 MG, START DATE UNKNOWN
     Route: 048
  7. MAREVAN [Concomitant]
     Active Substance: WARFARIN SODIUM
     Indication: THROMBOSIS PROPHYLAXIS
     Dosage: STRENGTH: 2.5 MG, DOSAGE: AFTER WRITTEN INSTRUCTIONS
     Route: 048
     Dates: start: 20110324

REACTIONS (6)
  - Malaise [Recovered/Resolved]
  - Dizziness [Recovered/Resolved]
  - Metabolic acidosis [Recovered/Resolved]
  - Muscular weakness [Recovered/Resolved]
  - Renal failure [Recovered/Resolved]
  - Hyperkalaemia [Recovered/Resolved]
